FAERS Safety Report 7944069-6 (Version None)
Quarter: 2011Q4

REPORT INFORMATION
  Report Type: 
  Country: None (occurrence: None)
  Receive Date: 20111128
  Receipt Date: 20111117
  Transmission Date: 20120403
  Serious: Yes (Hospitalization)
  Sender: FDA-Public Use
  Company Number: US-ASTRAZENECA-2010SE38569

PATIENT
  Age: 68 Year
  Sex: Female
  Weight: 66.2 kg

DRUGS (3)
  1. DALIRESP [Concomitant]
     Indication: CHRONIC OBSTRUCTIVE PULMONARY DISEASE
  2. COMBIVENT [Concomitant]
     Indication: EMPHYSEMA
  3. SYMBICORT [Suspect]
     Indication: EMPHYSEMA
     Dosage: 640 MCG TWO TIMES A DAY
     Route: 055

REACTIONS (3)
  - UPPER RESPIRATORY TRACT INFECTION [None]
  - BACTERIAL INFECTION [None]
  - DYSPNOEA [None]
